FAERS Safety Report 16983471 (Version 1)
Quarter: 2019Q4

REPORT INFORMATION
  Report Type: Spontaneous
  Country: US (occurrence: US)
  Receive Date: 20191030
  Receipt Date: 20191030
  Transmission Date: 20200122
  Serious: Yes (Other)
  Sender: FDA-Public Use
  Company Number: None

PATIENT
  Age: 63 Year
  Sex: Female

DRUGS (1)
  1. CAPECITABINE. [Suspect]
     Active Substance: CAPECITABINE
     Indication: BREAST CANCER FEMALE
     Dosage: 1500 MG ORAL 1500 AM / 1000 PM;?
     Route: 048
     Dates: start: 20190820, end: 20191030

REACTIONS (1)
  - Fatigue [None]

NARRATIVE: CASE EVENT DATE: 20191030
